FAERS Safety Report 8779700 (Version 2)
Quarter: 2012Q4

REPORT INFORMATION
  Report Type: 
  Country: US (occurrence: US)
  Receive Date: 20120912
  Receipt Date: 20120921
  Transmission Date: 20130627
  Serious: No
  Sender: FDA-Public Use
  Company Number: US-TEVA-355727USA

PATIENT
  Sex: Male

DRUGS (6)
  1. QNASL [Suspect]
     Dates: start: 20120510, end: 201205
  2. FINASTERIDE [Concomitant]
  3. FLOMAX [Concomitant]
  4. LIPITOR [Concomitant]
  5. ADVAIR [Concomitant]
  6. PROVENTIL HFA [Concomitant]

REACTIONS (2)
  - Urinary retention [Recovered/Resolved]
  - Insomnia [Recovered/Resolved]
